FAERS Safety Report 25599766 (Version 2)
Quarter: 2025Q3

REPORT INFORMATION
  Report Type: Spontaneous
  Country: TR (occurrence: TR)
  Receive Date: 20250724
  Receipt Date: 20250731
  Transmission Date: 20251020
  Serious: Yes (Other)
  Sender: UCB
  Company Number: None

PATIENT
  Age: 42 Year
  Sex: Male
  Weight: 130 kg

DRUGS (1)
  1. CIMZIA [Suspect]
     Active Substance: CERTOLIZUMAB PEGOL
     Indication: Ankylosing spondylitis
     Route: 030
     Dates: start: 20250603, end: 20250630

REACTIONS (5)
  - Haemorrhage [Recovered/Resolved]
  - Haematochezia [Unknown]
  - Arthralgia [Unknown]
  - Myalgia [Unknown]
  - Product administered at inappropriate site [Unknown]

NARRATIVE: CASE EVENT DATE: 20250603
